FAERS Safety Report 4801852-3 (Version None)
Quarter: 2005Q4

REPORT INFORMATION
  Report Type: 
  Country: None (occurrence: None)
  Receive Date: 20051011
  Receipt Date: 20050930
  Transmission Date: 20060501
  Serious: Yes (Disabling, Other)
  Sender: FDA-Public Use
  Company Number: 2002-09-0653

PATIENT
  Age: 43 Year
  Sex: Female
  Weight: 65.7716 kg

DRUGS (6)
  1. PEG-INTRON [Suspect]
     Indication: HEPATITIS C
     Dosage: ^4 MG^ QWK INTRAMUSCULAR
     Route: 030
     Dates: start: 20020222, end: 20020614
  2. REBETOL [Suspect]
     Indication: HEPATITIS C
     Dosage: 800 MG QD ORAL
     Route: 048
     Dates: start: 20020222, end: 20020614
  3. ACETAMINOPHEN [Concomitant]
  4. VICODIN [Concomitant]
  5. ANTIDEPRESANTS (NOS) [Concomitant]
  6. FOLIC ACID [Concomitant]

REACTIONS (25)
  - ASTHENIA [None]
  - AUTOIMMUNE DISORDER [None]
  - BLOOD CALCIUM DECREASED [None]
  - BLOOD IMMUNOGLOBULIN G INCREASED [None]
  - CONFUSIONAL STATE [None]
  - DEPRESSION [None]
  - DIFFICULTY IN WALKING [None]
  - DYSGRAPHIA [None]
  - DYSSTASIA [None]
  - FINGER DEFORMITY [None]
  - GRIP STRENGTH DECREASED [None]
  - INFECTION [None]
  - INFLUENZA LIKE ILLNESS [None]
  - INJURY [None]
  - JOINT CREPITATION [None]
  - MUSCLE SPASMS [None]
  - MUSCULOSKELETAL DISORDER [None]
  - MYALGIA [None]
  - PAIN [None]
  - PROTEIN TOTAL INCREASED [None]
  - PYREXIA [None]
  - RED BLOOD CELL SEDIMENTATION RATE INCREASED [None]
  - SYSTEMIC LUPUS ERYTHEMATOSUS [None]
  - TENDON DISORDER [None]
  - TENDONITIS [None]
